FAERS Safety Report 15457794 (Version 1)
Quarter: 2018Q4

REPORT INFORMATION
  Report Type: Spontaneous
  Country: US (occurrence: US)
  Receive Date: 20181003
  Receipt Date: 20181003
  Transmission Date: 20190204
  Serious: No
  Sender: FDA-Public Use
  Company Number: US-SUN PHARMACEUTICAL INDUSTRIES LTD-2018US-163510

PATIENT
  Sex: Male

DRUGS (2)
  1. LORATADINE. [Suspect]
     Active Substance: LORATADINE
     Indication: COUGH
     Dosage: 1 DF, DAILY
     Route: 065
  2. LORATADINE. [Suspect]
     Active Substance: LORATADINE
     Indication: INFLUENZA

REACTIONS (3)
  - Off label use [Unknown]
  - Intentional product misuse [Unknown]
  - Dizziness [Unknown]
